FAERS Safety Report 24628212 (Version 1)
Quarter: 2024Q4

REPORT INFORMATION
  Report Type: Spontaneous
  Country: MT (occurrence: MT)
  Receive Date: 20241117
  Receipt Date: 20241117
  Transmission Date: 20250115
  Serious: Yes (Other)
  Sender: AUROBINDO
  Company Number: MT-MLMSERVICE-20241029-PI240055-00174-1

PATIENT
  Age: 4 Decade
  Sex: Male

DRUGS (5)
  1. RISPERIDONE [Suspect]
     Active Substance: RISPERIDONE
     Indication: Substance-induced psychotic disorder
     Dosage: UNK (ADJUSTING TREATMENT DOSAGES)
     Route: 065
  2. HALOPERIDOL [Suspect]
     Active Substance: HALOPERIDOL
     Indication: Substance-induced psychotic disorder
     Dosage: UNK UNK, DAILY
     Route: 030
  3. HALOPERIDOL [Suspect]
     Active Substance: HALOPERIDOL
     Indication: Agitation
  4. LORAZEPAM [Concomitant]
     Active Substance: LORAZEPAM
     Indication: Substance-induced psychotic disorder
     Dosage: UNK
     Route: 048
  5. LORAZEPAM [Concomitant]
     Active Substance: LORAZEPAM
     Indication: Agitation

REACTIONS (3)
  - Trismus [Unknown]
  - Musculoskeletal stiffness [Unknown]
  - Extrapyramidal disorder [Unknown]
